FAERS Safety Report 16094791 (Version 4)
Quarter: 2020Q1

REPORT INFORMATION
  Report Type: Report from Study
  Country: NO (occurrence: NO)
  Receive Date: 20190320
  Receipt Date: 20200317
  Transmission Date: 20200409
  Serious: Yes (Hospitalization)
  Sender: FDA-Public Use
  Company Number: NO-ROCHE-2284185

PATIENT
  Age: 64 Year
  Sex: Male
  Weight: 73.1 kg

DRUGS (17)
  1. COBIMETINIB. [Suspect]
     Active Substance: COBIMETINIB
     Indication: PLASMA CELL MYELOMA
     Dosage: MOST RECENT DOSE OF COBIMETINIB PRIOR TO AE ONSET ON 04/MAR/2019 AND SAE ONSET ON 06/MAR/2019 (40 MG
     Route: 048
     Dates: start: 20190211
  2. CYKLOKAPRON [Concomitant]
     Active Substance: TRANEXAMIC ACID
     Indication: EPISTAXIS
     Route: 048
     Dates: start: 20150325
  3. VENETOCLAX. [Suspect]
     Active Substance: VENETOCLAX
     Indication: PLASMA CELL MYELOMA
     Dosage: MOST RECENT DOSE OF VENETOCLAX PRIOR TO AE ONSET ON 04/MAR/2019 AND SAE ONSET ON 06/MAR/2019 (800 MG
     Route: 048
     Dates: start: 20190211
  4. ZOFRAN [Concomitant]
     Active Substance: ONDANSETRON HYDROCHLORIDE
     Route: 048
     Dates: start: 20190217, end: 20190220
  5. AMOXICILLIN. [Concomitant]
     Active Substance: AMOXICILLIN
     Route: 048
     Dates: start: 20190325, end: 20190408
  6. CETIRIZINE DIHYDROCHLORIDE [Concomitant]
     Active Substance: CETIRIZINE HYDROCHLORIDE
     Indication: RASH
     Route: 048
     Dates: start: 20190311, end: 20190408
  7. ATEZOLIZUMAB. [Suspect]
     Active Substance: ATEZOLIZUMAB
     Indication: PLASMA CELL MYELOMA
     Dosage: MOST RECENT DOSE OF ATEZOLIZUMAB  PRIOR TO AE/SAE ONSET ON 25/FEB/2019
     Route: 042
     Dates: start: 20190211
  8. ZOMETA [Concomitant]
     Active Substance: ZOLEDRONIC ACID
     Route: 042
     Dates: start: 20180509
  9. LOPERAMID [Concomitant]
     Active Substance: LOPERAMIDE
     Route: 048
     Dates: start: 20190217
  10. CEFTAZIDIM [Concomitant]
     Active Substance: CEFTAZIDIME
     Route: 042
     Dates: start: 20190217, end: 20190219
  11. LOCOID [Concomitant]
     Active Substance: HYDROCORTISONE BUTYRATE
     Indication: RASH
     Route: 061
     Dates: start: 20190311, end: 20190408
  12. BACTRIM [Concomitant]
     Active Substance: SULFAMETHOXAZOLE\TRIMETHOPRIM
     Dosage: 1 UNKNOWN
     Route: 048
     Dates: start: 20190325, end: 20190408
  13. LOPERAMID [Concomitant]
     Active Substance: LOPERAMIDE
     Indication: DIARRHOEA
     Route: 048
     Dates: start: 20190211, end: 20190216
  14. ZOFRAN [Concomitant]
     Active Substance: ONDANSETRON HYDROCHLORIDE
     Indication: NAUSEA
     Route: 048
     Dates: start: 20190211, end: 20190216
  15. CALCIGRAN FORTE [Concomitant]
     Active Substance: CALCIUM CARBONATE\CHOLECALCIFEROL
     Route: 048
     Dates: start: 20180723
  16. AMOXICILLIN. [Concomitant]
     Active Substance: AMOXICILLIN
     Indication: GASTROINTESTINAL INFECTION
     Route: 048
     Dates: start: 20190221, end: 20190228
  17. FOLATE [Concomitant]
     Active Substance: FOLATE SODIUM
     Indication: MALABSORPTION
     Route: 048
     Dates: start: 20190408

REACTIONS (1)
  - Oral herpes [Recovered/Resolved]

NARRATIVE: CASE EVENT DATE: 20190304
